FAERS Safety Report 9461921 (Version 2)
Quarter: 2013Q3

REPORT INFORMATION
  Report Type: Spontaneous
  Country: US (occurrence: US)
  Receive Date: 20130816
  Receipt Date: 20130913
  Transmission Date: 20140515
  Serious: Yes (Hospitalization, Other)
  Sender: FDA-Public Use
  Company Number: US-JNJFOC-20130804473

PATIENT
  Sex: 0

DRUGS (1)
  1. RISPERDAL [Suspect]
     Indication: PRODUCT USED FOR UNKNOWN INDICATION
     Route: 065

REACTIONS (14)
  - Abdominal hernia [Unknown]
  - Dehydration [Unknown]
  - Blood glucose fluctuation [Unknown]
  - Weight increased [Unknown]
  - Breast enlargement [Unknown]
  - Galactorrhoea [Unknown]
  - Abdominal distension [Unknown]
  - Abdominal pain [Unknown]
  - Muscle spasms [Unknown]
  - Pain [Unknown]
  - Palpitations [Unknown]
  - Hypotension [Unknown]
  - Tremor [Unknown]
  - Sensation of pressure [Unknown]
